FAERS Safety Report 12525406 (Version 2)
Quarter: 2016Q3

REPORT INFORMATION
  Report Type: Report from Study
  Country: US (occurrence: US)
  Receive Date: 20160704
  Receipt Date: 20160801
  Transmission Date: 20161109
  Serious: Yes (Death, Other)
  Sender: FDA-Public Use
  Company Number: US-009507513-1607USA000262

PATIENT
  Age: 29 Year
  Sex: Male

DRUGS (1)
  1. MK-0000 [Suspect]
     Active Substance: INVESTIGATIONAL PRODUCT

REACTIONS (3)
  - Brain neoplasm [Unknown]
  - Disease progression [Unknown]
  - Death [Fatal]

NARRATIVE: CASE EVENT DATE: 20160713
